FAERS Safety Report 5230317-2 (Version None)
Quarter: 2007Q1

REPORT INFORMATION
  Report Type: 
  Country: None (occurrence: None)
  Receive Date: 20070206
  Receipt Date: 20070124
  Transmission Date: 20070707
  Serious: Yes (Other)
  Sender: FDA-Public Use
  Company Number: US-PFIZER INC-2007007475

PATIENT
  Sex: Male
  Weight: 88 kg

DRUGS (5)
  1. SUTENT [Suspect]
     Indication: RENAL CELL CARCINOMA STAGE UNSPECIFIED
     Dates: start: 20060801, end: 20070121
  2. NORVASC [Suspect]
     Indication: HYPERTENSION
     Dates: start: 20070123, end: 20070124
  3. ZOLOFT [Concomitant]
     Indication: DEPRESSION
  4. MORPHINE [Concomitant]
  5. HYDROCODONE BITARTRATE [Concomitant]

REACTIONS (4)
  - DISORIENTATION [None]
  - HYPERTENSION [None]
  - PSYCHOTIC DISORDER [None]
  - RASH [None]
